FAERS Safety Report 6537763-5 (Version None)
Quarter: 2010Q1

REPORT INFORMATION
  Report Type: 
  Country: None (occurrence: None)
  Receive Date: 20100114
  Receipt Date: 20091120
  Transmission Date: 20100710
  Serious: Yes (Other)
  Sender: FDA-Public Use
  Company Number: US-SANOFI-AVENTIS-200917901US

PATIENT
  Age: 54 Year
  Sex: Female

DRUGS (3)
  1. OPTICLICK [Suspect]
  2. INSULIN GLARGINE [Suspect]
     Dosage: DOSE:15 UNIT(S)
     Route: 058
     Dates: start: 20090701
  3. NO MENTION OF CONCOMITANT DRUGS [Concomitant]

REACTIONS (2)
  - BLOOD GLUCOSE DECREASED [None]
  - DEVICE MALFUNCTION [None]
